FAERS Safety Report 12924845 (Version 1)
Quarter: 2016Q4

REPORT INFORMATION
  Report Type: Spontaneous
  Country: US (occurrence: US)
  Receive Date: 20161108
  Receipt Date: 20161108
  Transmission Date: 20170207
  Serious: Yes (Life-Threatening, Other)
  Sender: FDA-Public Use
  Company Number: None

PATIENT
  Age: 23 Year
  Sex: Female
  Weight: 88.53 kg

DRUGS (2)
  1. LAMICTAL [Suspect]
     Active Substance: LAMOTRIGINE
     Indication: PREGNANCY
     Route: 048
     Dates: start: 2014
  2. LAMICTAL [Suspect]
     Active Substance: LAMOTRIGINE
     Indication: MYOCLONIC EPILEPSY
     Route: 048
     Dates: start: 2014

REACTIONS (4)
  - Exposure during pregnancy [None]
  - Injury [None]
  - Seizure [None]
  - Product substitution issue [None]
